FAERS Safety Report 5590695-1 (Version None)
Quarter: 2008Q1

REPORT INFORMATION
  Report Type: 
  Country: None (occurrence: None)
  Receive Date: 20080114
  Receipt Date: 20080103
  Transmission Date: 20080703
  Serious: Yes (Other)
  Sender: FDA-Public Use
  Company Number: BR-PFIZER INC-2005035684

PATIENT
  Age: 49 Year
  Sex: Male

DRUGS (4)
  1. NEURONTIN [Suspect]
     Indication: NEURALGIA
     Route: 048
     Dates: start: 20020101, end: 20070101
  2. CLONAZEPAM [Concomitant]
     Route: 048
  3. DEPRESSAN [Concomitant]
     Route: 048
  4. FLUOXETINE HYDROCHLORIDE [Concomitant]
     Route: 048

REACTIONS (11)
  - DEPRESSION [None]
  - DRUG INEFFECTIVE [None]
  - EYE DISORDER [None]
  - EYE PAIN [None]
  - INSOMNIA [None]
  - MUSCULOSKELETAL CHEST PAIN [None]
  - ORAL DISCOMFORT [None]
  - ORAL PAIN [None]
  - PAIN [None]
  - PANIC REACTION [None]
  - PARAESTHESIA ORAL [None]
